FAERS Safety Report 22134063 (Version 1)
Quarter: 2023Q1

REPORT INFORMATION
  Report Type: Spontaneous
  Country: US (occurrence: US)
  Receive Date: 20230324
  Receipt Date: 20230324
  Transmission Date: 20230418
  Serious: No
  Sender: FDA-Public Use
  Company Number: US-ADVANZ PHARMA-202302001505

PATIENT

DRUGS (5)
  1. HYDROXYCHLOROQUINE [Suspect]
     Active Substance: HYDROXYCHLOROQUINE
     Indication: Product used for unknown indication
     Dosage: UNK (PLAQUENIL)
     Route: 065
     Dates: end: 202212
  2. HYDROXYCHLOROQUINE [Suspect]
     Active Substance: HYDROXYCHLOROQUINE
     Dosage: UNK (PLAQUENIL)
     Route: 065
  3. OCALIVA [Suspect]
     Active Substance: OBETICHOLIC ACID
     Indication: Primary biliary cholangitis
     Dosage: 5 MG, QD
     Route: 048
     Dates: start: 20220713, end: 202212
  4. URSODIOL [Suspect]
     Active Substance: URSODIOL
     Indication: Product used for unknown indication
     Dosage: UNK, TID
     Route: 048
     Dates: end: 202212
  5. URSODIOL [Suspect]
     Active Substance: URSODIOL
     Dosage: UNK, TID
     Route: 048
     Dates: end: 202302

REACTIONS (15)
  - Tachycardia [Unknown]
  - Dyspepsia [Unknown]
  - Pain of skin [Unknown]
  - Skin injury [Unknown]
  - Skin burning sensation [Unknown]
  - Depression [Unknown]
  - Asthenia [Unknown]
  - Dermatitis [Unknown]
  - Erythema [Not Recovered/Not Resolved]
  - Vomiting [Unknown]
  - Pigmentation disorder [Unknown]
  - Headache [Unknown]
  - Pruritus [Recovered/Resolved]
  - Insurance issue [Unknown]
  - Therapy interrupted [Unknown]

NARRATIVE: CASE EVENT DATE: 20221201
